FAERS Safety Report 8174127-5 (Version None)
Quarter: 2012Q1

REPORT INFORMATION
  Report Type: 
  Country: None (occurrence: None)
  Receive Date: 20120224
  Receipt Date: 20120215
  Transmission Date: 20120608
  Serious: Yes (Death, Hospitalization)
  Sender: FDA-Public Use
  Company Number: FR-007561

PATIENT
  Age: 67 Year
  Sex: Male

DRUGS (11)
  1. NITROGLYCERIN [Concomitant]
  2. NICARDIPINE HYDROCHLORIDE [Concomitant]
  3. FIRMAGON [Suspect]
     Indication: PROSTATE CANCER
     Dosage: (240 MG 1X SUBCUTANEOUS)
     Route: 058
     Dates: start: 20111101, end: 20111101
  4. IKOREL [Concomitant]
  5. LEVOTHYROXINE SODIUM [Concomitant]
  6. CRESTOR [Concomitant]
  7. ACETAMINOPHEN AND TRAMADOL HCL [Concomitant]
  8. RAMIPRIL [Concomitant]
  9. PLAVIX [Concomitant]
  10. METFORMIN HCL [Concomitant]
  11. TAMSULOSINE HCL A [Concomitant]

REACTIONS (9)
  - RESPIRATORY FAILURE [None]
  - ACUTE CORONARY SYNDROME [None]
  - VENTRICULAR ARRHYTHMIA [None]
  - CARDIAC ARREST [None]
  - CARDIOGENIC SHOCK [None]
  - CONDUCTION DISORDER [None]
  - MULTI-ORGAN FAILURE [None]
  - PNEUMONIA ASPIRATION [None]
  - ACUTE RESPIRATORY DISTRESS SYNDROME [None]
